FAERS Safety Report 9281009 (Version 2)
Quarter: 2013Q2

REPORT INFORMATION
  Report Type: Report from Study
  Country: US (occurrence: US)
  Receive Date: 20130509
  Receipt Date: 20130524
  Transmission Date: 20140414
  Serious: Yes (Hospitalization)
  Sender: FDA-Public Use
  Company Number: US-GLAXOSMITHKLINE-A1021173B

PATIENT
  Age: 75 Year
  Sex: Female
  Weight: 62.7 kg

DRUGS (1)
  1. ELTROMBOPAG [Suspect]
     Indication: THROMBOCYTOPENIA
     Dosage: 200MG PER DAY
     Dates: start: 20130206

REACTIONS (1)
  - Pneumonia [Not Recovered/Not Resolved]
